FAERS Safety Report 15113727 (Version 1)
Quarter: 2018Q3

REPORT INFORMATION
  Report Type: Spontaneous
  Country: FR (occurrence: FR)
  Receive Date: 20180706
  Receipt Date: 20180706
  Transmission Date: 20181010
  Serious: Yes (Other)
  Sender: FDA-Public Use
  Company Number: FR-ROCHE-2150910

PATIENT
  Age: 51 Year
  Sex: Female
  Weight: 79 kg

DRUGS (4)
  1. AMOXICILLINE [Suspect]
     Active Substance: AMOXICILLIN
     Indication: LUNG DISORDER
     Route: 042
     Dates: start: 20180527, end: 20180602
  2. LEVETIRACETAM MYLAN [Suspect]
     Active Substance: LEVETIRACETAM
     Indication: EPILEPSY
     Dosage: FORM STRENGTH 100 MG/ML
     Route: 042
     Dates: start: 20180530, end: 20180608
  3. GARDENAL [Concomitant]
     Active Substance: PHENOBARBITAL
     Indication: EPILEPSY
     Route: 042
     Dates: start: 20180604, end: 20180604
  4. RIVOTRIL [Suspect]
     Active Substance: CLONAZEPAM
     Indication: EPILEPSY
     Dosage: FORM STRENGTH 1 MG/ML
     Route: 030
     Dates: start: 20180530, end: 20180608

REACTIONS (2)
  - Rash maculo-papular [Recovered/Resolved]
  - Eosinophilia [Recovered/Resolved]

NARRATIVE: CASE EVENT DATE: 20180603
